FAERS Safety Report 8924871 (Version 3)
Quarter: 2013Q2

REPORT INFORMATION
  Report Type: Spontaneous
  Country: US (occurrence: US)
  Receive Date: 20121126
  Receipt Date: 20130510
  Transmission Date: 20140414
  Serious: Yes (Hospitalization, Other)
  Sender: FDA-Public Use
  Company Number: US-PFIZER INC-2012294945

PATIENT
  Age: 61 Year
  Sex: Female
  Weight: 79.82 kg

DRUGS (7)
  1. DILANTIN [Suspect]
     Indication: EPILEPSY
     Dosage: UNK
     Route: 048
  2. DILANTIN [Suspect]
     Indication: EPILEPSY
     Dosage: 200MG ONE DAY AND 300MG THE NEXT DAY ALTERNATIVELY
  3. DILANTIN [Suspect]
     Dosage: 100MG TWO TIMES A DAY AND 100MG THREE TIMES A DAY ALTERNATIVELY
     Route: 048
  4. PHENYTOIN SODIUM [Suspect]
     Dosage: UNK
     Dates: end: 201305
  5. CLONAZEPAM [Suspect]
     Indication: EPILEPSY
     Dosage: UNK
  6. KLONOPIN [Suspect]
     Indication: EPILEPSY
     Dosage: 1MG AT NIGHT AND 0.5MG IN THE MORNING
  7. NEURONTIN [Concomitant]
     Dosage: UNK

REACTIONS (9)
  - Convulsion [Not Recovered/Not Resolved]
  - Bronchitis [Unknown]
  - Ear infection [Unknown]
  - Nervous system disorder [Unknown]
  - Headache [Unknown]
  - Pain [Unknown]
  - Gait disturbance [Unknown]
  - Vision blurred [Unknown]
  - Drug ineffective [Unknown]
